FAERS Safety Report 15498888 (Version 1)
Quarter: 2018Q4

REPORT INFORMATION
  Report Type: Spontaneous
  Country: US (occurrence: US)
  Receive Date: 20181015
  Receipt Date: 20181015
  Transmission Date: 20190205
  Serious: No
  Sender: FDA-Public Use
  Company Number: US-GLAXOSMITHKLINE-US2018181586

PATIENT
  Age: 69 Year
  Sex: Female

DRUGS (1)
  1. DICLOFENAC SODIUM GEL [Suspect]
     Active Substance: DICLOFENAC SODIUM
     Indication: OSTEOARTHRITIS
     Dosage: UNK
     Dates: start: 20180924, end: 20181004

REACTIONS (4)
  - Inappropriate schedule of product administration [Unknown]
  - Application site exfoliation [Unknown]
  - Osteoarthritis [Unknown]
  - Application site pain [Unknown]

NARRATIVE: CASE EVENT DATE: 20181001
